FAERS Safety Report 25746718 (Version 1)
Quarter: 2025Q3

REPORT INFORMATION
  Report Type: Spontaneous
  Country: EU (occurrence: EU)
  Receive Date: 20250901
  Receipt Date: 20250901
  Transmission Date: 20251021
  Serious: Yes (Hospitalization)
  Sender: NOVARTIS
  Company Number: EU-002147023-NVSC2025RO132052

PATIENT
  Age: 55 Year
  Sex: Male

DRUGS (2)
  1. TAFINLAR [Suspect]
     Active Substance: DABRAFENIB MESYLATE
     Indication: Malignant melanoma stage IV
     Dosage: 300 MG, QD
     Route: 065
     Dates: start: 201904
  2. MEKINIST [Suspect]
     Active Substance: TRAMETINIB DIMETHYL SULFOXIDE
     Indication: Malignant melanoma stage IV
     Dosage: 2 MG, QD
     Route: 065
     Dates: start: 201904

REACTIONS (4)
  - COVID-19 [Unknown]
  - COVID-19 [Unknown]
  - Blood lactate dehydrogenase increased [Recovered/Resolved]
  - Paronychia [Unknown]

NARRATIVE: CASE EVENT DATE: 20201001
